FAERS Safety Report 13977578 (Version 2)
Quarter: 2017Q3

REPORT INFORMATION
  Report Type: Spontaneous
  Country: US (occurrence: US)
  Receive Date: 20170915
  Receipt Date: 20170929
  Transmission Date: 20171128
  Serious: Yes (Other)
  Sender: FDA-Public Use
  Company Number: US-BRISTOL-MYERS SQUIBB COMPANY-BMS-2017-081144

PATIENT
  Age: 43 Year
  Sex: Female

DRUGS (1)
  1. SPRYCEL [Suspect]
     Active Substance: DASATINIB
     Indication: CHRONIC MYELOID LEUKAEMIA
     Dosage: 1 TAB, QD
     Route: 048
     Dates: start: 201707

REACTIONS (14)
  - Uterine haemorrhage [Recovered/Resolved]
  - Flatulence [Unknown]
  - Constipation [Unknown]
  - Paraesthesia [Unknown]
  - Chills [Unknown]
  - White blood cell count decreased [Unknown]
  - Drug dose omission [Unknown]
  - Pulmonary oedema [Recovered/Resolved]
  - Pelvic pain [Unknown]
  - Prescribed underdose [Unknown]
  - Abdominal distension [Unknown]
  - Ovarian cyst [Unknown]
  - Pleural effusion [Unknown]
  - Vitamin D decreased [Unknown]

NARRATIVE: CASE EVENT DATE: 20170827
